FAERS Safety Report 4731791-8 (Version None)
Quarter: 2005Q3

REPORT INFORMATION
  Report Type: 
  Country: None (occurrence: None)
  Receive Date: 20050802
  Receipt Date: 20050729
  Transmission Date: 20060218
  Serious: Yes (Death)
  Sender: FDA-Public Use
  Company Number: CA-BRISTOL-MYERS SQUIBB COMPANY-13057559

PATIENT
  Age: 23 Year
  Sex: Female
  Weight: 46 kg

DRUGS (12)
  1. ATAZANAVIR [Suspect]
     Indication: HIV INFECTION
     Route: 048
     Dates: start: 20031124, end: 20040126
  2. TENOFOVIR [Concomitant]
     Dates: start: 20031124, end: 20040126
  3. KALETRA [Concomitant]
     Dates: start: 20031124, end: 20040126
  4. DIABETA [Concomitant]
     Dates: start: 20031124, end: 20040126
  5. AVANDIA [Concomitant]
     Dates: start: 20031105, end: 20040126
  6. LIPIDIL [Concomitant]
     Dates: start: 20031027, end: 20040126
  7. FLUCONAZOLE [Concomitant]
     Dates: start: 20030918, end: 20040126
  8. SEPTRA DS [Concomitant]
     Dates: start: 20030730, end: 20040126
  9. SINGULAIR [Concomitant]
     Dates: start: 20030303, end: 20040126
  10. LOSEC [Concomitant]
     Dates: start: 20020429, end: 20040126
  11. CELEXA [Concomitant]
     Dates: start: 20011026, end: 20040126
  12. ADVAIR DISKUS 100/50 [Concomitant]
     Dates: start: 19990826, end: 20040126

REACTIONS (1)
  - SUDDEN DEATH [None]
